FAERS Safety Report 25940663 (Version 1)
Quarter: 2025Q4

REPORT INFORMATION
  Report Type: Spontaneous
  Country: US (occurrence: None)
  Receive Date: 20251019
  Receipt Date: 20251019
  Transmission Date: 20260117
  Serious: Yes (Hospitalization)
  Sender: FDA-CTU
  Company Number: None

PATIENT
  Sex: Female

DRUGS (1)
  1. AMBRISENTAN [Suspect]
     Active Substance: AMBRISENTAN
     Indication: Pulmonary arterial hypertension
     Dosage: ?5 MG DAILY ORAL
     Route: 048
     Dates: start: 20210519

REACTIONS (2)
  - Cardiac failure congestive [None]
  - Therapy cessation [None]
